APPROVED DRUG PRODUCT: LEFLUNOMIDE
Active Ingredient: LEFLUNOMIDE
Strength: 10MG
Dosage Form/Route: TABLET;ORAL
Application: A077087 | Product #001 | TE Code: AB
Applicant: FOSUN WANBANG (JIANGSU) PHARMACEUTICAL GROUP CO LTD
Approved: Sep 13, 2005 | RLD: No | RS: No | Type: RX